FAERS Safety Report 5302457-0 (Version None)
Quarter: 2007Q2

REPORT INFORMATION
  Report Type: 
  Country: None (occurrence: None)
  Receive Date: 20070419
  Receipt Date: 20070406
  Transmission Date: 20071010
  Serious: Yes (Hospitalization, Other)
  Sender: FDA-Public Use
  Company Number: US-ELI_LILLY_AND_COMPANY-US200602000655

PATIENT
  Age: 88 Year
  Sex: Female
  Weight: 39.455 kg

DRUGS (3)
  1. FORTEO [Suspect]
     Indication: OSTEOPOROSIS
     Dosage: UNK, UNK
     Dates: start: 20050331
  2. FORTEO [Suspect]
  3. FORTEO [Suspect]
     Dates: start: 20070401

REACTIONS (8)
  - ABDOMINAL PAIN [None]
  - ASTHENIA [None]
  - FALL [None]
  - FATIGUE [None]
  - GASTROINTESTINAL DISORDER [None]
  - HIP FRACTURE [None]
  - MALAISE [None]
  - WEIGHT GAIN POOR [None]
